FAERS Safety Report 12613933 (Version 8)
Quarter: 2016Q4

REPORT INFORMATION
  Report Type: Spontaneous
  Country: US (occurrence: US)
  Receive Date: 20160802
  Receipt Date: 20161102
  Transmission Date: 20170207
  Serious: No
  Sender: FDA-Public Use
  Company Number: US-PFIZER INC-2016359231

PATIENT
  Age: 71 Year
  Sex: Male
  Weight: 118 kg

DRUGS (16)
  1. ALLOPURINOL. [Concomitant]
     Active Substance: ALLOPURINOL
     Indication: GOUT
     Dosage: 300 MG, 1X/DAY
     Route: 048
  2. ASPIRIN. [Concomitant]
     Active Substance: ASPIRIN
     Indication: BLOOD DISORDER
     Dosage: 81 MG, 1X/DAY
     Route: 048
     Dates: start: 1999
  3. LISINOPRIL. [Concomitant]
     Active Substance: LISINOPRIL
     Indication: BLOOD PRESSURE MEASUREMENT
     Dosage: 7.5 MG, 1X/DAY
     Route: 048
     Dates: start: 2016
  4. METOPROLOL. [Concomitant]
     Active Substance: METOPROLOL
     Indication: CARDIAC DISORDER
     Dosage: 75 MG, 1X/DAY
     Route: 048
     Dates: start: 1999
  5. SUTENT [Suspect]
     Active Substance: SUNITINIB MALATE
     Indication: METASTATIC RENAL CELL CARCINOMA
     Dosage: 50 MG, 1X/DAY
     Route: 048
     Dates: start: 20160625
  6. SUTENT [Suspect]
     Active Substance: SUNITINIB MALATE
     Dosage: 25 MG, CYCLIC (25 MG DAILY, 28 DAYS ON AND 14 DAYS OFF )
     Dates: start: 20160702
  7. SUTENT [Suspect]
     Active Substance: SUNITINIB MALATE
     Dosage: 50 MG, CYCLIC (EVERY OTHER DAY, 28 DAYS ON, 14 DAYS OFF)
     Dates: start: 20160702
  8. ASPIRIN. [Concomitant]
     Active Substance: ASPIRIN
     Indication: CARDIAC DISORDER
  9. LUBRIDERM [Concomitant]
     Active Substance: AVOBENZONE\HOMOSALATE\OCTISALATE\OCTOCRYLENE\OXYBENZONE
     Dosage: UNK
  10. FAMOTIDINE. [Concomitant]
     Active Substance: FAMOTIDINE
     Dosage: UNK
  11. SUTENT [Suspect]
     Active Substance: SUNITINIB MALATE
     Dosage: 25 MG, CYCLIC (28 DAYS ON/14 DAYS OFF)
     Dates: start: 20160702, end: 20160905
  12. COQ10 [Concomitant]
     Active Substance: UBIDECARENONE
     Dosage: UNK
  13. ZANTAC [Concomitant]
     Active Substance: RANITIDINE HYDROCHLORIDE
     Indication: GASTROOESOPHAGEAL REFLUX DISEASE
     Dosage: 150 MG, 2X/DAY
     Route: 048
     Dates: start: 2005
  14. PRILOSEC [Concomitant]
     Active Substance: OMEPRAZOLE MAGNESIUM
     Dosage: UNK, 1X/DAY
     Dates: start: 201607
  15. GAS-X [Concomitant]
     Active Substance: DIMETHICONE
     Indication: FLATULENCE
     Dosage: UNK
  16. SUCRALFATE. [Concomitant]
     Active Substance: SUCRALFATE
     Dosage: UNK

REACTIONS (16)
  - Arthralgia [Unknown]
  - Dyspepsia [Unknown]
  - Abdominal discomfort [Recovered/Resolved]
  - Oral pain [Recovered/Resolved]
  - Oral discomfort [Recovered/Resolved]
  - Rash [Unknown]
  - Hyperkeratosis [Not Recovered/Not Resolved]
  - Pain in extremity [Recovered/Resolved]
  - Increased appetite [Unknown]
  - Flatulence [Unknown]
  - Fatigue [Unknown]
  - Skin exfoliation [Unknown]
  - Rash macular [Unknown]
  - Bronchial irritation [Not Recovered/Not Resolved]
  - Anal haemorrhage [Unknown]
  - Gait disturbance [Unknown]

NARRATIVE: CASE EVENT DATE: 20160724
